FAERS Safety Report 9509481 (Version 1)
Quarter: 2013Q3

REPORT INFORMATION
  Report Type: Spontaneous
  Country: US (occurrence: US)
  Receive Date: 20130909
  Receipt Date: 20130909
  Transmission Date: 20140515
  Serious: No
  Sender: FDA-Public Use
  Company Number: US-BRISTOL-MYERS SQUIBB COMPANY-18953638

PATIENT
  Age: 42 Year
  Sex: Female
  Weight: 97.5 kg

DRUGS (14)
  1. ABILIFY TABS 20 MG [Suspect]
     Indication: BIPOLAR DISORDER
  2. BENADRYL [Concomitant]
     Indication: PAIN
  3. TYLENOL EXTRA STRENGTH [Concomitant]
     Indication: PAIN
  4. LAMICTAL [Concomitant]
  5. TRAZODONE HCL [Concomitant]
  6. VYVANSE [Concomitant]
  7. RITALIN [Concomitant]
  8. WELLBUTRIN [Concomitant]
  9. ARTANE [Concomitant]
  10. PRILOSEC [Concomitant]
  11. ZYRTEC [Concomitant]
  12. SINGULAIR [Concomitant]
  13. ADVAIR [Concomitant]
     Dosage: 1DF=500/50-UNITS NOS
  14. VALACYCLOVIR [Concomitant]

REACTIONS (2)
  - Dystonia [Unknown]
  - Plantar fasciitis [Not Recovered/Not Resolved]
